FAERS Safety Report 5601780-X (Version None)
Quarter: 2008Q1

REPORT INFORMATION
  Report Type: 
  Country: None (occurrence: None)
  Receive Date: 20080124
  Receipt Date: 20080122
  Transmission Date: 20080703
  Serious: Yes (Other)
  Sender: FDA-Public Use
  Company Number: CA-MERCK-0801CAN00190

PATIENT
  Sex: Male

DRUGS (5)
  1. SINGULAIR [Suspect]
     Route: 048
     Dates: start: 20030101, end: 20070101
  2. SINGULAIR [Suspect]
     Route: 048
     Dates: start: 20070101
  3. ADVAIR DISKUS 100/50 [Concomitant]
     Route: 065
  4. [THERAPY UNSPECIFIED] [Concomitant]
     Route: 065
  5. [THERAPY UNSPECIFIED] [Concomitant]
     Route: 065

REACTIONS (2)
  - LOWER RESPIRATORY TRACT INFECTION [None]
  - LUNG NEOPLASM MALIGNANT [None]
